FAERS Safety Report 13667830 (Version 1)
Quarter: 2017Q2

REPORT INFORMATION
  Report Type: Spontaneous
  Country: US (occurrence: US)
  Receive Date: 20170619
  Receipt Date: 20170619
  Transmission Date: 20170830
  Serious: No
  Sender: FDA-Public Use
  Company Number: None

PATIENT
  Age: 86 Year
  Sex: Male

DRUGS (2)
  1. MYCOPHENOLIC TAB 360MG DR [Suspect]
     Active Substance: MYCOPHENOLIC ACID
  2. TACROLIMUS CAP 1MG [Suspect]
     Active Substance: TACROLIMUS

REACTIONS (1)
  - Nausea [None]

NARRATIVE: CASE EVENT DATE: 20170619
